FAERS Safety Report 9749406 (Version 2)
Quarter: 2014Q1

REPORT INFORMATION
  Report Type: Spontaneous
  Country: US (occurrence: US)
  Receive Date: 20131212
  Receipt Date: 20140218
  Transmission Date: 20141002
  Serious: No
  Sender: FDA-Public Use
  Company Number: US-BIOGENIDEC-2013BI093079

PATIENT
  Age: 63 Year
  Sex: Male

DRUGS (10)
  1. TECFIDERA [Suspect]
     Indication: MULTIPLE SCLEROSIS
     Route: 048
     Dates: start: 20130821, end: 20130827
  2. TECFIDERA [Suspect]
     Indication: MULTIPLE SCLEROSIS
     Route: 048
     Dates: start: 20130828
  3. ADVIL [Concomitant]
  4. BACLOFEN PUMP [Concomitant]
  5. COUMADIN [Concomitant]
  6. HUMALOG [Concomitant]
  7. HYDROCO-ACETAM [Concomitant]
  8. LANTUS [Concomitant]
  9. METFORMIN [Concomitant]
  10. VENLAFAXINE [Concomitant]

REACTIONS (4)
  - Irritability [Not Recovered/Not Resolved]
  - Memory impairment [Unknown]
  - Hot flush [Not Recovered/Not Resolved]
  - Diarrhoea [Not Recovered/Not Resolved]
